FAERS Safety Report 20096018 (Version 1)
Quarter: 2021Q4

REPORT INFORMATION
  Report Type: Other
  Country: SE (occurrence: SE)
  Receive Date: 20211122
  Receipt Date: 20211122
  Transmission Date: 20220303
  Serious: Yes (Disabling)
  Sender: FDA-Public Use
  Company Number: SE-ASTELLAS-2021US044664

PATIENT
  Age: 70 Year
  Sex: Female

DRUGS (1)
  1. ISAVUCONAZOLE [Suspect]
     Active Substance: ISAVUCONAZOLE
     Indication: Aspergillus infection
     Route: 048
     Dates: start: 20200514, end: 20210131

REACTIONS (2)
  - Weight increased [Not Recovered/Not Resolved]
  - Off label use [Unknown]

NARRATIVE: CASE EVENT DATE: 20200514
